FAERS Safety Report 4771540-0 (Version None)
Quarter: 2005Q3

REPORT INFORMATION
  Report Type: 
  Country: None (occurrence: None)
  Receive Date: 20050916
  Receipt Date: 20050905
  Transmission Date: 20060218
  Serious: Yes (Hospitalization)
  Sender: FDA-Public Use
  Company Number: GB-BOEHRINGER INGELHEIM PHARMACEUTICALS, INC.-2005-DE-03566GD

PATIENT
  Age: 56 Year
  Sex: Male

DRUGS (10)
  1. DIPYRIDAMOLE [Suspect]
     Indication: ANTIPLATELET THERAPY
  2. ATORVASTATIN [Concomitant]
  3. BENDROFLUMETHIAZIDE [Concomitant]
  4. RAMIPRIL [Concomitant]
  5. AMLODIPINE [Concomitant]
  6. ISOSORBIDE MONONITRATE [Concomitant]
     Route: 048
  7. PIOGLITAZONE HCL [Concomitant]
  8. HYDRALAZINE [Concomitant]
  9. METFORMIN [Concomitant]
  10. METHYLDOPA [Concomitant]

REACTIONS (7)
  - ATRIAL FIBRILLATION [None]
  - BLOOD PRESSURE INCREASED [None]
  - CEREBRAL ARTERY THROMBOSIS [None]
  - HEMIANOPIA HOMONYMOUS [None]
  - ILLUSION [None]
  - SOMNOLENCE [None]
  - TREATMENT NONCOMPLIANCE [None]
